FAERS Safety Report 10611342 (Version 2)
Quarter: 2014Q4

REPORT INFORMATION
  Report Type: Report from Study
  Country: KE (occurrence: KE)
  Receive Date: 20141126
  Receipt Date: 20141126
  Transmission Date: 20150529
  Serious: Yes (Death, Other)
  Sender: FDA-Public Use
  Company Number: KE-GLAXOSMITHKLINE-B0950259A

PATIENT
  Age: 45 Year
  Sex: Male

DRUGS (9)
  1. FLUCONAZOLE. [Suspect]
     Active Substance: FLUCONAZOLE
     Dates: start: 20131107, end: 20131121
  2. EFAVIRENZ [Suspect]
     Active Substance: EFAVIRENZ
     Dates: start: 20130815, end: 20131123
  3. CIPROFLOXACIN. [Suspect]
     Active Substance: CIPROFLOXACIN
     Dates: start: 20131017, end: 20131112
  4. SEPTRIN [Suspect]
     Active Substance: SULFAMETHOXAZOLE\TRIMETHOPRIM
     Dates: start: 20130801, end: 20131107
  5. TINIDAZOLE. [Suspect]
     Active Substance: TINIDAZOLE
     Dates: start: 20131107, end: 20131109
  6. UNKNOWN DRUG [Suspect]
     Active Substance: UNSPECIFIED INGREDIENT
     Dates: start: 20131107, end: 20131123
  7. FOOD [Suspect]
     Active Substance: UNSPECIFIED INGREDIENT
     Dates: start: 20131107, end: 20131121
  8. ABACAVIR SULFATE + LAMIVUDINE [Suspect]
     Active Substance: ABACAVIR SULFATE\LAMIVUDINE
     Indication: HIV INFECTION
     Dates: start: 20131017, end: 20131123
  9. FOOD [Suspect]
     Active Substance: UNSPECIFIED INGREDIENT
     Dates: start: 20130815, end: 20131123

REACTIONS (1)
  - Death [Fatal]

NARRATIVE: CASE EVENT DATE: 20131123
